FAERS Safety Report 5262577-6 (Version None)
Quarter: 2007Q1

REPORT INFORMATION
  Report Type: 
  Country: None (occurrence: None)
  Receive Date: 20070312
  Receipt Date: 20070226
  Transmission Date: 20070707
  Serious: Yes (Hospitalization, Other)
  Sender: FDA-Public Use
  Company Number: PHEH2007US02506

PATIENT
  Age: 65 Year
  Sex: Female
  Weight: 58.956 kg

DRUGS (14)
  1. PREMPRO [Suspect]
     Indication: HORMONE REPLACEMENT THERAPY
     Dates: start: 19960815
  2. BELLERGAL-S [Concomitant]
     Indication: HOT FLUSH
  3. LEXAPRO [Concomitant]
     Indication: ANXIETY
     Dosage: 10 MG, QD
     Route: 048
  4. LORAZEPAM [Concomitant]
     Indication: INSOMNIA
  5. ESTRADERM [Suspect]
     Indication: HORMONE REPLACEMENT THERAPY
     Dosage: 0.1 MG, UNK
     Route: 062
     Dates: start: 19940101
  6. PREMARIN [Suspect]
     Indication: HORMONE REPLACEMENT THERAPY
  7. PROVERA [Suspect]
     Indication: HORMONE REPLACEMENT THERAPY
  8. NORVASC [Concomitant]
     Indication: HYPERTENSION
     Dosage: 10 MG, QD
     Route: 048
  9. MEVACOR [Concomitant]
     Indication: HYPERCHOLESTEROLAEMIA
     Dosage: 80 MG, QD
     Route: 048
  10. ZETIA [Concomitant]
     Indication: HYPERCHOLESTEROLAEMIA
  11. VITAMIN E [Concomitant]
  12. ASPIRIN [Concomitant]
     Dosage: 325 MG, QD
     Route: 048
  13. LOPRESSOR [Concomitant]
     Indication: HYPERTENSION
     Dosage: 100 MG, QD
     Route: 048
  14. ALTACE [Concomitant]
     Indication: HYPERTENSION
     Dosage: 5 MG, QD
     Route: 048

REACTIONS (21)
  - ARTERIAL DISORDER [None]
  - ARTERIOSCLEROSIS [None]
  - BLOOD CHOLESTEROL ABNORMAL [None]
  - BREAST CANCER [None]
  - BREAST ENLARGEMENT [None]
  - BREAST MASS [None]
  - CAROTID ARTERY STENOSIS [None]
  - CAROTID ENDARTERECTOMY [None]
  - ECCHYMOSIS [None]
  - INCISIONAL DRAINAGE [None]
  - LYMPHADENECTOMY [None]
  - MALIGNANT BREAST LUMP REMOVAL [None]
  - MASS EXCISION [None]
  - POST PROCEDURAL COMPLICATION [None]
  - RASH [None]
  - SKIN LESION [None]
  - SKIN LESION EXCISION [None]
  - SOFT TISSUE DISORDER [None]
  - SURGERY [None]
  - TELANGIECTASIA [None]
  - TENDERNESS [None]
